FAERS Safety Report 17907075 (Version 1)
Quarter: 2020Q2

REPORT INFORMATION
  Report Type: Other
  Country: US (occurrence: US)
  Receive Date: 20200617
  Receipt Date: 20200617
  Transmission Date: 20200714
  Serious: Yes (Other)
  Sender: FDA-Public Use
  Company Number: US-HEALTHCARE PHARMACEUTICALS LTD.-2086015

PATIENT
  Age: 7 Year

DRUGS (4)
  1. 5-FLOUROURACIL [Suspect]
     Active Substance: FLUOROURACIL
     Route: 065
  2. DOXORUBICIN HYDROCHLORIDE. [Suspect]
     Active Substance: DOXORUBICIN HYDROCHLORIDE
     Indication: HEPATOCELLULAR CARCINOMA
     Route: 065
  3. CISPLATIN. [Suspect]
     Active Substance: CISPLATIN
     Route: 065
  4. VINCRISTINE SULFATE. [Suspect]
     Active Substance: VINCRISTINE SULFATE
     Route: 065

REACTIONS (1)
  - Therapeutic product effect decreased [Unknown]
